FAERS Safety Report 20838953 (Version 1)
Quarter: 2022Q2

REPORT INFORMATION
  Report Type: Report from Study
  Country: US (occurrence: US)
  Receive Date: 20220517
  Receipt Date: 20220517
  Transmission Date: 20220721
  Serious: No
  Sender: FDA-Public Use
  Company Number: US-NOVARTISTESTPH-NVSC2022US112256

PATIENT
  Sex: Female

DRUGS (1)
  1. ENTRESTO [Suspect]
     Active Substance: SACUBITRIL\VALSARTAN
     Indication: Cardiac failure acute
     Dosage: 50 MG (24/26 MG), BID (STARTED AROUND 20 APR 2022, NOT SURE OF EXACT DATE)
     Route: 048
     Dates: start: 202204

REACTIONS (2)
  - Cough [Unknown]
  - Product prescribing issue [Unknown]
